FAERS Safety Report 7948454-8 (Version None)
Quarter: 2011Q4

REPORT INFORMATION
  Report Type: 
  Country: None (occurrence: None)
  Receive Date: 20111130
  Receipt Date: 20111121
  Transmission Date: 20120403
  Serious: Yes (Other)
  Sender: FDA-Public Use
  Company Number: JP-ASTELLAS-2011JP008624

PATIENT
  Age: 46 Year
  Sex: Female

DRUGS (6)
  1. GANATON [Concomitant]
     Dosage: UNK
     Route: 065
  2. LANSOPRAZOLE [Concomitant]
     Route: 065
  3. LEFTOSE [Concomitant]
     Route: 065
  4. NORGESTREL AND ETHINYL ESTRADIOL [Concomitant]
     Route: 065
  5. VESICARE [Suspect]
     Indication: HYPERTONIC BLADDER
     Dosage: 10 MG, UNKNOWN/D
     Route: 048
  6. ALYSE S [Concomitant]
     Route: 065

REACTIONS (1)
  - EXTRASYSTOLES [None]
